FAERS Safety Report 5407355-X (Version None)
Quarter: 2007Q3

REPORT INFORMATION
  Report Type: 
  Country: None (occurrence: None)
  Receive Date: 20070807
  Receipt Date: 20070730
  Transmission Date: 20080115
  Serious: Yes (Death)
  Sender: FDA-Public Use
  Company Number: GB-ABBOTT-07P-167-0376129-00

PATIENT

DRUGS (1)
  1. DEPAKOTE [Suspect]
     Indication: DRUG EXPOSURE DURING PREGNANCY
     Route: 064

REACTIONS (6)
  - ACIDOSIS [None]
  - DYSKINESIA [None]
  - HEART RATE DECREASED [None]
  - INFANTILE APNOEIC ATTACK [None]
  - METABOLIC DISORDER [None]
  - MUSCLE TWITCHING [None]
